FAERS Safety Report 17843348 (Version 2)
Quarter: 2020Q3

REPORT INFORMATION
  Report Type: Report from Study
  Country: None (occurrence: US)
  Receive Date: 20200530
  Receipt Date: 20200704
  Transmission Date: 20201103
  Serious: Yes (Other)
  Sender: FDA-Public Use
  Company Number: US-ABBVIE-20K-163-3424927-00

PATIENT
  Sex: Female

DRUGS (2)
  1. ISUPREL [Concomitant]
     Active Substance: ISOPROTERENOL HYDROCHLORIDE
     Indication: PRODUCT USED FOR UNKNOWN INDICATION
  2. HUMIRA [Suspect]
     Active Substance: ADALIMUMAB
     Indication: PSORIASIS
     Dosage: CITRATE FREE
     Route: 058

REACTIONS (11)
  - Hypertension [Not Recovered/Not Resolved]
  - Hordeolum [Recovering/Resolving]
  - Coronary artery occlusion [Not Recovered/Not Resolved]
  - Blood cholesterol abnormal [Not Recovered/Not Resolved]
  - Diabetes mellitus [Not Recovered/Not Resolved]
  - Glaucoma [Not Recovered/Not Resolved]
  - Cough [Not Recovered/Not Resolved]
  - Visual impairment [Recovering/Resolving]
  - Skin exfoliation [Not Recovered/Not Resolved]
  - Erythema [Not Recovered/Not Resolved]
  - Eructation [Unknown]
